FAERS Safety Report 25493989 (Version 1)
Quarter: 2025Q2

REPORT INFORMATION
  Report Type: Spontaneous
  Country: GB (occurrence: GB)
  Receive Date: 20250630
  Receipt Date: 20250630
  Transmission Date: 20250716
  Serious: Yes (Other)
  Sender: INSUD PHARMA
  Company Number: GB-MHRA-TPP57288178C7904010YC1750662683461

PATIENT
  Age: 40 Year
  Sex: Female
  Weight: 59 kg

DRUGS (6)
  1. SLYND [Suspect]
     Active Substance: DROSPIRENONE
     Indication: Adverse drug reaction
     Dates: start: 20250424
  2. DAPAGLIFLOZIN [Concomitant]
     Active Substance: DAPAGLIFLOZIN
     Indication: Ill-defined disorder
     Route: 048
     Dates: start: 20250620
  3. 4SURE [Concomitant]
     Indication: Ill-defined disorder
     Dates: start: 20240805
  4. METFORMIN [Concomitant]
     Active Substance: METFORMIN HYDROCHLORIDE
     Indication: Ill-defined disorder
     Dates: start: 20240909
  5. ATORVASTATIN [Concomitant]
     Active Substance: ATORVASTATIN
     Indication: Ill-defined disorder
     Route: 048
     Dates: start: 20250123
  6. KETOSTIX [Concomitant]
     Indication: Ill-defined disorder
     Dates: start: 20250620

REACTIONS (1)
  - Hyperglycaemia [Recovered/Resolved]

NARRATIVE: CASE EVENT DATE: 20250616
